FAERS Safety Report 24606108 (Version 1)
Quarter: 2024Q4

REPORT INFORMATION
  Report Type: Spontaneous
  Country: JP (occurrence: JP)
  Receive Date: 20241112
  Receipt Date: 20241112
  Transmission Date: 20250114
  Serious: Yes (Hospitalization, Other)
  Sender: GLAXOSMITHKLINE
  Company Number: JP-GSK-JP2024JPN137729

PATIENT

DRUGS (4)
  1. LAMICTAL [Suspect]
     Active Substance: LAMOTRIGINE
     Indication: Epilepsy
     Dosage: UNK
  2. LAMICTAL [Suspect]
     Active Substance: LAMOTRIGINE
     Indication: Prophylaxis
  3. PREDNISOLONE [Suspect]
     Active Substance: PREDNISOLONE
     Indication: Drug eruption
     Dosage: 0.5 MG/KG, QD, 30 MG DAILY
  4. PREDNISOLONE [Suspect]
     Active Substance: PREDNISOLONE
     Dosage: 20 MG, QD, GRADUAL REDUCTION EVEN AFTER THE DISCHARGE

REACTIONS (11)
  - Drug eruption [Recovering/Resolving]
  - Muscle abscess [Unknown]
  - Tenderness [Unknown]
  - Inflammation [Recovering/Resolving]
  - Pyrexia [Unknown]
  - Hypoalbuminaemia [Unknown]
  - Malnutrition [Unknown]
  - Infection susceptibility increased [Unknown]
  - Muscle injury [Unknown]
  - Pruritus [Unknown]
  - Skin exfoliation [Unknown]
